FAERS Safety Report 25153549 (Version 1)
Quarter: 2025Q2

REPORT INFORMATION
  Report Type: Spontaneous
  Country: IN (occurrence: IN)
  Receive Date: 20250403
  Receipt Date: 20250403
  Transmission Date: 20250717
  Serious: Yes (Death, Life-Threatening, Hospitalization)
  Sender: ACCORD
  Company Number: IN-MLMSERVICE-20250317-PI448104-00218-1

PATIENT
  Age: 62 Year
  Sex: Male

DRUGS (3)
  1. METHOTREXATE [Suspect]
     Active Substance: METHOTREXATE
     Indication: Rheumatoid arthritis
     Dosage: HIGH DOSE (7.5 MG EVERY 12 HRS/120 MG/WEEK FOR ONE MONTH)
  2. ACECLOFENAC [Concomitant]
     Active Substance: ACECLOFENAC
     Indication: Rheumatoid arthritis
  3. PREDNISOLONE [Concomitant]
     Active Substance: PREDNISOLONE
     Indication: Rheumatoid arthritis

REACTIONS (11)
  - Mucosal inflammation [Fatal]
  - Neutropenic sepsis [Fatal]
  - Myelosuppression [Fatal]
  - Respiratory distress [Fatal]
  - Klebsiella infection [Fatal]
  - Klebsiella bacteraemia [Fatal]
  - Klebsiella sepsis [Fatal]
  - Septic shock [Fatal]
  - Multiple organ dysfunction syndrome [Fatal]
  - Cardiac arrest [Fatal]
  - Toxicity to various agents [Fatal]
